FAERS Safety Report 20426476 (Version 1)
Quarter: 2022Q1

REPORT INFORMATION
  Report Type: Spontaneous
  Country: DE (occurrence: DE)
  Receive Date: 20220204
  Receipt Date: 20220204
  Transmission Date: 20220423
  Serious: No
  Sender: FDA-Public Use
  Company Number: DE-EXELIXIS-CABO-21042764

PATIENT
  Sex: Female

DRUGS (7)
  1. CABOMETYX [Suspect]
     Active Substance: CABOZANTINIB S-MALATE
     Indication: Adrenal gland cancer
     Dosage: 60 MG
     Dates: start: 20200819, end: 20200902
  2. CABOMETYX [Suspect]
     Active Substance: CABOZANTINIB S-MALATE
     Indication: Metastases to liver
     Dosage: 60 MG
     Dates: start: 20200904, end: 20200909
  3. CABOMETYX [Suspect]
     Active Substance: CABOZANTINIB S-MALATE
     Indication: Malignant neoplasm of renal pelvis
     Dosage: 40 MG, QD
     Dates: start: 20201005, end: 20201219
  4. CABOMETYX [Suspect]
     Active Substance: CABOZANTINIB S-MALATE
     Indication: Bone neoplasm
     Dosage: 40 MG, QD
     Dates: start: 20210118, end: 20210303
  5. CABOMETYX [Suspect]
     Active Substance: CABOZANTINIB S-MALATE
     Dosage: 40 MG, QD
     Dates: start: 20210423, end: 20210508
  6. CABOMETYX [Suspect]
     Active Substance: CABOZANTINIB S-MALATE
     Dosage: 40 MG, QD
     Dates: start: 20210611, end: 20210705
  7. CABOMETYX [Suspect]
     Active Substance: CABOZANTINIB S-MALATE
     Dosage: 40 MG, QD
     Dates: start: 20210816

REACTIONS (20)
  - Proctitis [Unknown]
  - Tongue discomfort [Recovered/Resolved]
  - Anorectal discomfort [Not Recovered/Not Resolved]
  - Nasal mucosal disorder [Recovering/Resolving]
  - Oropharyngeal pain [Recovering/Resolving]
  - Blister [Unknown]
  - Skin disorder [Unknown]
  - Pruritus [Unknown]
  - Hair colour changes [Unknown]
  - Alopecia [Recovering/Resolving]
  - Rectal haemorrhage [Recovering/Resolving]
  - Diarrhoea [Recovered/Resolved]
  - Stomatitis [Recovered/Resolved]
  - Dyspepsia [Recovering/Resolving]
  - Dry skin [Unknown]
  - Cough [Recovering/Resolving]
  - Constipation [Unknown]
  - Dry mouth [Recovered/Resolved]
  - Inappropriate schedule of product administration [Unknown]
  - Off label use [Unknown]
